FAERS Safety Report 9176201 (Version 2)
Quarter: 2013Q2

REPORT INFORMATION
  Report Type: Spontaneous
  Country: US (occurrence: US)
  Receive Date: 20130321
  Receipt Date: 20130609
  Transmission Date: 20140414
  Serious: No
  Sender: FDA-Public Use
  Company Number: US-009507513-1303USA009274

PATIENT
  Sex: Female

DRUGS (1)
  1. IMPLANON [Suspect]
     Dosage: UNK
     Dates: start: 200910, end: 201303

REACTIONS (7)
  - Keloid scar [Recovering/Resolving]
  - Weight increased [Recovering/Resolving]
  - Incorrect drug administration duration [Unknown]
  - Device difficult to use [Unknown]
  - Device deployment issue [Unknown]
  - Medical device complication [Unknown]
  - Implant site fibrosis [Unknown]
